FAERS Safety Report 4589038-1 (Version None)
Quarter: 2005Q1

REPORT INFORMATION
  Report Type: 
  Country: None (occurrence: None)
  Receive Date: 20050222
  Receipt Date: 20041021
  Transmission Date: 20050727
  Serious: Yes (Death, Hospitalization)
  Sender: FDA-Public Use
  Company Number: DE-MERCK-0410DEU00655

PATIENT
  Age: 46 Year
  Sex: Male

DRUGS (2)
  1. VIOXX [Suspect]
     Indication: CERVICOBRACHIAL SYNDROME
     Route: 048
     Dates: start: 20040109, end: 20040701
  2. VIOXX [Suspect]
     Indication: BACK PAIN
     Route: 048
     Dates: start: 20040109, end: 20040701

REACTIONS (3)
  - DEATH [None]
  - GASTRIC ULCER [None]
  - HELICOBACTER GASTRITIS [None]
